FAERS Safety Report 4987648-0 (Version None)
Quarter: 2006Q2

REPORT INFORMATION
  Report Type: 
  Country: None (occurrence: None)
  Receive Date: 20060424
  Receipt Date: 20060407
  Transmission Date: 20061013
  Serious: Yes (Hospitalization, Other)
  Sender: FDA-Public Use
  Company Number: US200602004937

PATIENT
  Age: 59 Year
  Sex: Female
  Weight: 73.5 kg

DRUGS (2)
  1. EVISTA [Suspect]
     Indication: OSTEOPOROSIS
     Dosage: 60 MG, DAILY (1/D)
     Dates: start: 19980101
  2. TAMOXIFEN CITRATE [Concomitant]

REACTIONS (1)
  - ENDOMETRIAL CANCER [None]
